FAERS Safety Report 9417812 (Version 2)
Quarter: 2014Q3

REPORT INFORMATION
  Report Type: Spontaneous
  Country: DE (occurrence: DE)
  Receive Date: 20130724
  Receipt Date: 20140911
  Transmission Date: 20150326
  Serious: Yes (Congenital Anomaly)
  Sender: FDA-Public Use
  Company Number: DE-GLAXOSMITHKLINE-D0080543A

PATIENT

DRUGS (1)
  1. CEFUHEXAL [Suspect]
     Active Substance: CEFUROXIME AXETIL
     Indication: SINUSITIS
     Dosage: 500MG UNKNOWN
     Route: 064
     Dates: start: 2011, end: 2011

REACTIONS (4)
  - Foetal exposure during pregnancy [Unknown]
  - Congenital hand malformation [Not Recovered/Not Resolved]
  - Limb reduction defect [Not Recovered/Not Resolved]
  - Amniotic band syndrome [Not Recovered/Not Resolved]
